FAERS Safety Report 5512180-5 (Version None)
Quarter: 2007Q4

REPORT INFORMATION
  Report Type: 
  Country: None (occurrence: None)
  Receive Date: 20071112
  Receipt Date: 20071106
  Transmission Date: 20080405
  Serious: Yes (Life-Threatening)
  Sender: FDA-Public Use
  Company Number: PHEH2007US14494

PATIENT
  Sex: Female

DRUGS (1)
  1. ZELNORM [Suspect]
     Dosage: 6 MG, TID
     Route: 048

REACTIONS (3)
  - DRUG INEFFECTIVE [None]
  - GASTRIC OPERATION [None]
  - WEIGHT DECREASED [None]
